FAERS Safety Report 9005607 (Version 1)
Quarter: 2013Q1

REPORT INFORMATION
  Report Type: Spontaneous
  Country: US (occurrence: US)
  Receive Date: 20130109
  Receipt Date: 20130109
  Transmission Date: 20140127
  Serious: Yes (Other)
  Sender: FDA-Public Use
  Company Number: US-TEVA-378789USA

PATIENT
  Age: 21 Year
  Sex: Female

DRUGS (1)
  1. PROAIR HFA [Suspect]
     Indication: ASTHMA

REACTIONS (4)
  - Foreign body aspiration [Recovering/Resolving]
  - Cough [Recovering/Resolving]
  - Tracheal dilatation [Recovering/Resolving]
  - Device malfunction [Unknown]
